FAERS Safety Report 9847542 (Version 3)
Quarter: 2014Q1

REPORT INFORMATION
  Report Type: Report from Study
  Country: CA (occurrence: CA)
  Receive Date: 20140128
  Receipt Date: 20140206
  Transmission Date: 20141002
  Serious: Yes (Other)
  Sender: FDA-Public Use
  Company Number: CA-ROCHE-1334366

PATIENT
  Age: 58 Year
  Sex: Female
  Weight: 82.6 kg

DRUGS (10)
  1. RITUXAN [Suspect]
     Indication: RHEUMATOID ARTHRITIS
     Route: 042
     Dates: start: 20130717
  2. SOLU-MEDROL [Suspect]
     Indication: PREMEDICATION
     Route: 042
     Dates: start: 20130717, end: 20130802
  3. SOLU-MEDROL [Suspect]
     Route: 042
     Dates: start: 20140114
  4. ACETAMINOPHEN [Concomitant]
     Indication: PREMEDICATION
     Route: 048
     Dates: start: 20130717
  5. CLOPIDOGREL [Concomitant]
  6. PANTOPRAZOLE [Concomitant]
  7. LEVOTHYROXINE [Concomitant]
  8. COVERSYL [Concomitant]
  9. DIPHENHYDRAMINE HCL [Concomitant]
     Indication: PREMEDICATION
     Route: 048
     Dates: start: 20130717
  10. ASA [Concomitant]
     Route: 065

REACTIONS (2)
  - Diabetes mellitus inadequate control [Unknown]
  - Blood pressure increased [Not Recovered/Not Resolved]
